FAERS Safety Report 5161209-5 (Version None)
Quarter: 2006Q4

REPORT INFORMATION
  Report Type: 
  Country: None (occurrence: None)
  Receive Date: 20061130
  Receipt Date: 20060817
  Transmission Date: 20070319
  Serious: Yes (Hospitalization, Other)
  Sender: FDA-Public Use
  Company Number: US-BRISTOL-MYERS SQUIBB COMPANY-13482567

PATIENT
  Age: 36 Year
  Sex: Male

DRUGS (5)
  1. ERBITUX [Suspect]
     Indication: COLORECTAL CANCER METASTATIC
     Route: 042
     Dates: start: 20060613, end: 20060703
  2. AVASTIN [Suspect]
     Indication: COLORECTAL CANCER METASTATIC
     Route: 042
     Dates: start: 20060613, end: 20060703
  3. CHEMOTHERAPY [Suspect]
     Indication: COLORECTAL CANCER METASTATIC
  4. IRINOTECAN HCL [Concomitant]
  5. 5-FLUOROURACIL [Concomitant]

REACTIONS (2)
  - ABSCESS [None]
  - RASH [None]
